FAERS Safety Report 21362128 (Version 1)
Quarter: 2022Q3

REPORT INFORMATION
  Report Type: Spontaneous
  Country: US (occurrence: US)
  Receive Date: 20220922
  Receipt Date: 20220922
  Transmission Date: 20221027
  Serious: No
  Sender: FDA-Public Use
  Company Number: US-INGENUS PHARMACEUTICALS, LLC-2021INF000139

PATIENT

DRUGS (1)
  1. CABERGOLINE [Suspect]
     Active Substance: CABERGOLINE
     Indication: Breast cancer
     Dosage: 0.25 MILLIGRAM, 1 TIMES A WEEK
     Route: 065
     Dates: start: 2021

REACTIONS (7)
  - Breast discharge [Recovered/Resolved]
  - Breast pain [Recovered/Resolved]
  - Headache [Recovered/Resolved]
  - Product colour issue [Unknown]
  - Product storage error [Unknown]
  - Poor quality product administered [Unknown]
  - Product use in unapproved indication [Unknown]
